FAERS Safety Report 7888772-5 (Version None)
Quarter: 2011Q4

REPORT INFORMATION
  Report Type: 
  Country: None (occurrence: None)
  Receive Date: 20111101
  Receipt Date: 20111014
  Transmission Date: 20120403
  Serious: Yes (Hospitalization, Other)
  Sender: FDA-Public Use
  Company Number: 2011SP035917

PATIENT
  Age: 43 Year
  Sex: Female

DRUGS (3)
  1. PEG-INTRON [Suspect]
     Indication: HEPATITIS C
     Dates: start: 20110624
  2. TELAPREVIR [Suspect]
     Indication: HEPATITIS C
     Dates: start: 20110624
  3. RIBAVIRIN [Suspect]
     Indication: HEPATITIS C
     Dates: start: 20110624

REACTIONS (3)
  - ARTHRITIS BACTERIAL [None]
  - PULMONARY EMBOLISM [None]
  - SEPSIS [None]
